FAERS Safety Report 4596315-7 (Version None)
Quarter: 2005Q1

REPORT INFORMATION
  Report Type: 
  Country: None (occurrence: None)
  Receive Date: 20050228
  Receipt Date: 20050215
  Transmission Date: 20050727
  Serious: Yes (Other)
  Sender: FDA-Public Use
  Company Number: HQWYE411018FEB05

PATIENT
  Age: 58 Year
  Sex: Male

DRUGS (5)
  1. RAPAMUNE [Suspect]
     Indication: PROPHYLAXIS AGAINST TRANSPLANT REJECTION
     Dosage: 3 MG 1X PER 1 DAY ORAL
     Route: 048
     Dates: start: 20040817
  2. SIMVASTATIN [Concomitant]
  3. ASPIRIN [Concomitant]
  4. BACTRIM DS [Concomitant]
  5. PREDNISONE [Concomitant]

REACTIONS (1)
  - COLON ADENOMA [None]
